FAERS Safety Report 16062703 (Version 1)
Quarter: 2019Q1

REPORT INFORMATION
  Report Type: Spontaneous
  Country: US (occurrence: US)
  Receive Date: 20190312
  Receipt Date: 20190312
  Transmission Date: 20190418
  Serious: No
  Sender: FDA-Public Use
  Company Number: US-NOVOPROD-639424

PATIENT
  Sex: Male
  Weight: 102.49 kg

DRUGS (1)
  1. XULTOPHY 100/3.6 [Suspect]
     Active Substance: INSULIN DEGLUDEC\LIRAGLUTIDE
     Indication: DIABETES MELLITUS
     Dosage: 25 U, QD AFTER SUPPER
     Route: 058
     Dates: start: 201811

REACTIONS (5)
  - Pre-existing condition improved [Unknown]
  - Weight decreased [Unknown]
  - Dysgeusia [Unknown]
  - Hypophagia [Unknown]
  - Glycosylated haemoglobin decreased [Unknown]

NARRATIVE: CASE EVENT DATE: 2018
